APPROVED DRUG PRODUCT: FLUPHENAZINE HYDROCHLORIDE
Active Ingredient: FLUPHENAZINE HYDROCHLORIDE
Strength: 5MG/ML
Dosage Form/Route: CONCENTRATE;ORAL
Application: A073058 | Product #001
Applicant: ANI PHARMACEUTICALS INC
Approved: Aug 30, 1991 | RLD: No | RS: No | Type: DISCN